FAERS Safety Report 14588670 (Version 2)
Quarter: 2018Q2

REPORT INFORMATION
  Report Type: Spontaneous
  Country: US (occurrence: US)
  Receive Date: 20180301
  Receipt Date: 20180410
  Transmission Date: 20180711
  Serious: No
  Sender: FDA-Public Use
  Company Number: US-GLAXOSMITHKLINE-US2018032680

PATIENT
  Age: 84 Year
  Sex: Male

DRUGS (3)
  1. FLOMAX [Concomitant]
     Active Substance: TAMSULOSIN HYDROCHLORIDE
  2. BREO ELLIPTA [Suspect]
     Active Substance: FLUTICASONE FUROATE\VILANTEROL TRIFENATATE
     Indication: CHRONIC OBSTRUCTIVE PULMONARY DISEASE
     Dosage: 100/25
     Route: 055
     Dates: start: 20180212, end: 20180219
  3. COUMADIN [Concomitant]
     Active Substance: WARFARIN SODIUM

REACTIONS (5)
  - Candida infection [Recovering/Resolving]
  - Oral mucosal blistering [Recovering/Resolving]
  - Oral disorder [Recovering/Resolving]
  - Tongue blistering [Recovering/Resolving]
  - Tongue disorder [Recovering/Resolving]

NARRATIVE: CASE EVENT DATE: 20180217
